FAERS Safety Report 5908773-3 (Version None)
Quarter: 2008Q4

REPORT INFORMATION
  Report Type: 
  Country: None (occurrence: None)
  Receive Date: 20081006
  Receipt Date: 20080926
  Transmission Date: 20090506
  Serious: Yes (Other)
  Sender: FDA-Public Use
  Company Number: PHHY2008AR22718

PATIENT
  Age: 61 Year
  Sex: Female

DRUGS (5)
  1. DIOVAN [Suspect]
     Indication: HYPERTENSION
     Dosage: 80 MG, QD
     Dates: start: 20080813, end: 20080919
  2. DULOXETINE [Concomitant]
  3. VAPRESAN [Concomitant]
  4. METFORMIN HCL [Concomitant]
  5. LAMOTRIGINE [Concomitant]

REACTIONS (2)
  - DIPLOPIA [None]
  - DIZZINESS [None]
